FAERS Safety Report 18802269 (Version 3)
Quarter: 2021Q2

REPORT INFORMATION
  Report Type: Spontaneous
  Country: US (occurrence: US)
  Receive Date: 20210128
  Receipt Date: 20210414
  Transmission Date: 20210717
  Serious: No
  Sender: FDA-Public Use
  Company Number: US-PFIZER INC-2021064266

PATIENT
  Age: 72 Year
  Sex: Male

DRUGS (2)
  1. XELJANZ [Suspect]
     Active Substance: TOFACITINIB CITRATE
     Dosage: 5 MG
     Dates: start: 202012
  2. ASPIRIN [ACETYLSALICYLIC ACID] [Concomitant]
     Active Substance: ASPIRIN
     Dosage: UNK

REACTIONS (9)
  - Throat irritation [Unknown]
  - Dysphagia [Unknown]
  - Condition aggravated [Unknown]
  - Dry mouth [Unknown]
  - Joint swelling [Unknown]
  - Product dose omission issue [Unknown]
  - Pruritus [Unknown]
  - Dry throat [Unknown]
  - Intentional product use issue [Unknown]

NARRATIVE: CASE EVENT DATE: 202012
